FAERS Safety Report 18573031 (Version 1)
Quarter: 2020Q4

REPORT INFORMATION
  Report Type: Spontaneous
  Country: US (occurrence: US)
  Receive Date: 20201203
  Receipt Date: 20201203
  Transmission Date: 20210114
  Serious: No
  Sender: FDA-Public Use
  Company Number: US-ALLERGAN-2004903US

PATIENT
  Age: 74 Year
  Sex: Male

DRUGS (1)
  1. DALVANCE [Suspect]
     Active Substance: DALBAVANCIN
     Indication: INFECTION
     Dosage: 1500 MG, SINGLE
     Route: 042
     Dates: start: 201912, end: 201912

REACTIONS (2)
  - Infection [Recovering/Resolving]
  - Drug ineffective [Unknown]
